FAERS Safety Report 7901362-0 (Version None)
Quarter: 2011Q4

REPORT INFORMATION
  Report Type: 
  Country: None (occurrence: None)
  Receive Date: 20111108
  Receipt Date: 20111107
  Transmission Date: 20120403
  Serious: Yes (Other)
  Sender: FDA-Public Use
  Company Number: US-PFIZER INC-2011272614

PATIENT
  Sex: Female
  Weight: 72.562 kg

DRUGS (11)
  1. METHOTREXATE [Concomitant]
     Dosage: UNK, WEEKLY
  2. ALPRAZOLAM [Concomitant]
     Indication: MUSCLE SPASMS
     Dosage: 0.2 MG, AS NEEDED
  3. LYRICA [Concomitant]
     Dosage: UNK
  4. CHANTIX [Suspect]
     Indication: SMOKING CESSATION THERAPY
     Dosage: 0.5 MG, 1X/DAY
     Route: 048
     Dates: start: 20100101, end: 20100101
  5. DIAZEPAM [Concomitant]
     Indication: MUSCLE SPASMS
     Dosage: UNK, 2X/DAY
  6. CLONAZEPAM [Concomitant]
     Dosage: 1 MG, 1X/DAY
  7. METHOCARBAMOL [Concomitant]
     Dosage: 750 MG, 4X/DAY
  8. ZANAFLEX [Concomitant]
     Dosage: 7.5 MG, 1X/DAY
  9. CHANTIX [Suspect]
     Dosage: UNK
     Route: 048
     Dates: start: 20100101, end: 20100101
  10. HYDROCODONE [Concomitant]
     Dosage: UNK, AS NEEDED
  11. FLEXERIL [Concomitant]
     Indication: MUSCLE SPASMS
     Dosage: 10 MG, 3X/DAY

REACTIONS (1)
  - SUICIDAL IDEATION [None]
